FAERS Safety Report 9533140 (Version 1)
Quarter: 2013Q1

REPORT INFORMATION
  Report Type: Spontaneous
  Country: US (occurrence: None)
  Receive Date: 20130314
  Receipt Date: 20130314
  Transmission Date: 20140127
  Serious: Yes (Other)
  Sender: FDA-Public Use
  Company Number: M2012-011

PATIENT
  Age: 19 Year
  Sex: Male

DRUGS (2)
  1. ABS DILUENT (PHENOL) [Suspect]
     Route: 060
     Dates: start: 201202
  2. UNK EXTRACTS NSTD GLY HOLLIST-STIER [Suspect]
     Route: 060
     Dates: start: 201202

REACTIONS (1)
  - Conversion disorder [None]
